FAERS Safety Report 7581217-4 (Version None)
Quarter: 2011Q2

REPORT INFORMATION
  Report Type: 
  Country: None (occurrence: None)
  Receive Date: 20110629
  Receipt Date: 20110623
  Transmission Date: 20111010
  Serious: Yes (Death, Hospitalization)
  Sender: FDA-Public Use
  Company Number: US-CELGENEUS-163-21880-11063208

PATIENT
  Age: 68 Year
  Sex: Male

DRUGS (7)
  1. REVLIMID [Suspect]
     Dosage: 10 MILLIGRAM
     Route: 048
     Dates: start: 20100401, end: 20100901
  2. CHOLECALCIFEROL [Concomitant]
     Route: 065
  3. REVLIMID [Suspect]
     Indication: MULTIPLE MYELOMA
     Dosage: 10 MILLIGRAM
     Route: 048
     Dates: start: 20100301
  4. PRAVASTATIN [Concomitant]
     Route: 065
  5. VICODIN [Concomitant]
     Indication: BACK PAIN
     Route: 065
     Dates: start: 20100901
  6. ATENOLOL [Concomitant]
     Route: 065
  7. ALLOPURINOL [Concomitant]
     Route: 065

REACTIONS (6)
  - RENAL FAILURE ACUTE [None]
  - MULTIPLE MYELOMA [None]
  - BACK PAIN [None]
  - MENTAL STATUS CHANGES [None]
  - SEPTIC SHOCK [None]
  - ANAEMIA [None]
